FAERS Safety Report 13651486 (Version 17)
Quarter: 2018Q2

REPORT INFORMATION
  Report Type: Report from Study
  Country: CA (occurrence: CA)
  Receive Date: 20170614
  Receipt Date: 20180621
  Transmission Date: 20180711
  Serious: Yes (Other)
  Sender: FDA-Public Use
  Company Number: CA-SA-2016SA083389

PATIENT
  Age: 51 Year
  Sex: Female
  Weight: 94.34 kg

DRUGS (14)
  1. ALEMTUZUMAB [Suspect]
     Active Substance: ALEMTUZUMAB
     Dosage: 12 MG,QD
     Route: 041
     Dates: start: 20160425, end: 20160429
  2. SOLU-MEDROL [Suspect]
     Active Substance: METHYLPREDNISOLONE SODIUM SUCCINATE
     Indication: PREMEDICATION
     Dosage: 750 MG,QD
     Route: 042
     Dates: start: 20160425, end: 20160429
  3. PREGABALIN. [Concomitant]
     Active Substance: PREGABALIN
     Dosage: UNK
     Route: 048
  4. OMEPRAZOLE. [Concomitant]
     Active Substance: OMEPRAZOLE
     Dosage: UNK
     Route: 048
  5. IRON [Concomitant]
     Active Substance: IRON
     Dosage: UNK
     Route: 048
  6. CLONAZEPAM. [Concomitant]
     Active Substance: CLONAZEPAM
     Dosage: UNK
     Route: 048
  7. VENTOLIN [SALBUTAMOL] [Concomitant]
     Indication: ASTHMA
     Dosage: UNK UNK,PRN
     Route: 055
  8. ATORVASTATIN [Concomitant]
     Active Substance: ATORVASTATIN
     Dosage: UNK
     Route: 048
  9. HYDROXYZINE [Concomitant]
     Active Substance: HYDROXYZINE HYDROCHLORIDE
     Dosage: FREQUENCY: QHS
     Route: 048
  10. BABY ASPIRIN [Concomitant]
     Active Substance: ASPIRIN
     Dosage: UNK UNK,QD
     Route: 048
  11. TRAZODONE [Concomitant]
     Active Substance: TRAZODONE HYDROCHLORIDE
     Dosage: 400 MG,UNK
     Route: 048
  12. METFORMIN [Concomitant]
     Active Substance: METFORMIN HYDROCHLORIDE
     Indication: DIABETES MELLITUS
     Dosage: 500 MG,BID
     Route: 048
  13. OMEPRAZOLE. [Concomitant]
     Active Substance: OMEPRAZOLE
     Dosage: 20 MG,UNK
     Route: 048
  14. TOPAMAX [Concomitant]
     Active Substance: TOPIRAMATE
     Dosage: 25 MG,UNK
     Route: 048

REACTIONS (48)
  - Nausea [Not Recovered/Not Resolved]
  - Vitamin B12 deficiency [Not Recovered/Not Resolved]
  - Urinary sediment present [Not Recovered/Not Resolved]
  - Specific gravity urine decreased [Recovered/Resolved]
  - Erythema [Recovered/Resolved]
  - Myelodysplastic syndrome [Unknown]
  - Red cell distribution width increased [Recovered/Resolved]
  - Urine leukocyte esterase positive [Recovered/Resolved]
  - Crystal urine present [Not Recovered/Not Resolved]
  - Band neutrophil percentage increased [Not Recovered/Not Resolved]
  - Eosinophil percentage increased [Recovered/Resolved]
  - Red blood cell count decreased [Recovered/Resolved]
  - Poor quality sleep [Not Recovered/Not Resolved]
  - Chills [Not Recovered/Not Resolved]
  - Polyuria [Recovered/Resolved]
  - Anaemia [Unknown]
  - Bacterial test [Recovered/Resolved]
  - Neutrophil count decreased [Recovered/Resolved]
  - Lymphocyte percentage decreased [Not Recovered/Not Resolved]
  - Pyrexia [Not Recovered/Not Resolved]
  - White blood cell count decreased [Not Recovered/Not Resolved]
  - Blood thyroid stimulating hormone increased [Recovered/Resolved]
  - White blood cells urine positive [Recovered/Resolved]
  - Haemoglobin decreased [Recovered/Resolved]
  - Myelocyte percentage increased [Unknown]
  - Amnesia [Not Recovered/Not Resolved]
  - Monocyte percentage increased [Not Recovered/Not Resolved]
  - Haematocrit decreased [Recovered/Resolved]
  - Culture urine positive [Recovered/Resolved]
  - Pancytopenia [Unknown]
  - Migraine [Not Recovered/Not Resolved]
  - Neutrophil percentage increased [Recovered/Resolved]
  - Myelocyte count increased [Unknown]
  - Lymphocyte count decreased [Not Recovered/Not Resolved]
  - Polydipsia [Recovered/Resolved]
  - Headache [Not Recovered/Not Resolved]
  - Punctate basophilia [Unknown]
  - Bilirubin urine [Recovered/Resolved]
  - Urine analysis abnormal [Not Recovered/Not Resolved]
  - Cough [Recovering/Resolving]
  - Fatigue [Not Recovered/Not Resolved]
  - Blood pressure systolic increased [Not Recovered/Not Resolved]
  - Iron deficiency anaemia [Not Recovered/Not Resolved]
  - Platelet count decreased [Not Recovered/Not Resolved]
  - Polychromasia [Not Recovered/Not Resolved]
  - Crystal urine present [Unknown]
  - Back pain [Not Recovered/Not Resolved]
  - Pain [Not Recovered/Not Resolved]

NARRATIVE: CASE EVENT DATE: 201604
